FAERS Safety Report 19651507 (Version 1)
Quarter: 2021Q3

REPORT INFORMATION
  Report Type: Spontaneous
  Country: US (occurrence: US)
  Receive Date: 20210803
  Receipt Date: 20210803
  Transmission Date: 20211014
  Serious: No
  Sender: FDA-Public Use
  Company Number: US-BAYER-2019-224775

PATIENT
  Age: 35 Year
  Sex: Male

DRUGS (2)
  1. GADOPENTETATE DIMEGLUMINE. [Suspect]
     Active Substance: GADOPENTETATE DIMEGLUMINE
     Dosage: 50 MMOL IN TOTAL
  2. GADOBUTROL. [Suspect]
     Active Substance: GADOBUTROL
     Dosage: 24.5 MMOL IN TOTAL

REACTIONS (2)
  - Contrast media deposition [None]
  - Laboratory test abnormal [None]
